FAERS Safety Report 5182654-8 (Version None)
Quarter: 2006Q4

REPORT INFORMATION
  Report Type: 
  Country: None (occurrence: None)
  Receive Date: 20061220
  Receipt Date: 20061208
  Transmission Date: 20070319
  Serious: Yes (Other)
  Sender: FDA-Public Use
  Company Number: PHEH2006US15064

PATIENT
  Age: 16 Year
  Sex: Male

DRUGS (7)
  1. EXJADE [Suspect]
     Indication: IRON OVERLOAD
     Route: 048
     Dates: start: 20060401, end: 20060501
  2. TACROLIMUS [Concomitant]
  3. PREVACID [Concomitant]
  4. ALDACTONE [Concomitant]
  5. LASIX [Concomitant]
  6. DIGOXIN [Concomitant]
  7. MYCOPHENOLATE MOFETIL [Concomitant]

REACTIONS (5)
  - ANURIA [None]
  - BLOOD CREATININE INCREASED [None]
  - CREATININE RENAL CLEARANCE DECREASED [None]
  - MENTAL STATUS CHANGES [None]
  - RENAL FAILURE ACUTE [None]
